FAERS Safety Report 7878917 (Version 4)
Quarter: 2013Q2

REPORT INFORMATION
  Report Type: Report from Study
  Country: US (occurrence: US)
  Receive Date: 20110330
  Receipt Date: 20130528
  Transmission Date: 20140414
  Serious: Yes (Other)
  Sender: FDA-Public Use
  Company Number: US-ABBOTT-11P-163-0714670-00

PATIENT
  Age: 47 Year
  Sex: Male

DRUGS (11)
  1. SIMCOR [Suspect]
     Indication: PRODUCT USED FOR UNKNOWN INDICATION
  2. SAXAGLIPTIN [Suspect]
     Indication: TYPE 2 DIABETES MELLITUS
     Dates: start: 20100806, end: 20101202
  3. METFORMIN HCL [Suspect]
     Indication: TYPE 2 DIABETES MELLITUS
  4. LANTUS [Suspect]
     Indication: TYPE 2 DIABETES MELLITUS
  5. GLYBURIDE [Suspect]
     Indication: TYPE 2 DIABETES MELLITUS
  6. GLYBURIDE [Suspect]
     Indication: TYPE 2 DIABETES MELLITUS
  7. INSULIN [Suspect]
     Indication: TYPE 2 DIABETES MELLITUS
  8. PLACEBO [Suspect]
     Indication: TYPE 2 DIABETES MELLITUS
  9. CRESTOR [Suspect]
     Indication: PRODUCT USED FOR UNKNOWN INDICATION
  10. ASPIRIN [Concomitant]
     Indication: PRODUCT USED FOR UNKNOWN INDICATION
  11. NIACIN [Concomitant]
     Indication: PRODUCT USED FOR UNKNOWN INDICATION

REACTIONS (2)
  - Muscular weakness [Recovering/Resolving]
  - Myalgia [Recovered/Resolved]
